FAERS Safety Report 5365064-X (Version None)
Quarter: 2007Q2

REPORT INFORMATION
  Report Type: 
  Country: None (occurrence: None)
  Receive Date: 20070621
  Receipt Date: 20070614
  Transmission Date: 20071010
  Serious: Yes (Other)
  Sender: FDA-Public Use
  Company Number: JP-AVENTIS-200711413JP

PATIENT
  Age: 95 Year
  Sex: Female

DRUGS (5)
  1. LASIX [Suspect]
     Route: 048
  2. LIPITOR [Suspect]
  3. MUCODYNE [Suspect]
  4. ASPIRIN [Concomitant]
  5. UNKNOWN DRUG [Concomitant]

REACTIONS (1)
  - PLEURAL EFFUSION [None]
